FAERS Safety Report 7142382-6 (Version None)
Quarter: 2010Q4

REPORT INFORMATION
  Report Type: 
  Country: None (occurrence: None)
  Receive Date: 20101207
  Receipt Date: 20101129
  Transmission Date: 20110411
  Serious: Yes (Hospitalization, Other)
  Sender: FDA-Public Use
  Company Number: US-ELI_LILLY_AND_COMPANY-US201010001866

PATIENT
  Sex: Female
  Weight: 43.991 kg

DRUGS (7)
  1. FORTEO [Suspect]
     Indication: OSTEOPOROSIS
  2. NORVASC [Concomitant]
     Dosage: 5 MG, DAILY (1/D)
  3. COUMADIN [Concomitant]
     Dosage: 2 MG, DAILY (1/D)
  4. DIGOXIN [Concomitant]
     Dosage: 0.062 MG, DAILY (1/D)
  5. MIRALAX [Concomitant]
  6. CALCIUM CARBONATE [Concomitant]
     Dosage: 600 MG, 2/D
  7. MEGACE ES [Concomitant]
     Dosage: 800 MG, UNK
     Route: 048
     Dates: start: 20101008

REACTIONS (5)
  - ABDOMINAL ADHESIONS [None]
  - HYPERCALCAEMIA [None]
  - HYPERPARATHYROIDISM [None]
  - INTESTINAL OBSTRUCTION [None]
  - SMALL INTESTINAL OBSTRUCTION [None]
